FAERS Safety Report 21996624 (Version 1)
Quarter: 2023Q1

REPORT INFORMATION
  Report Type: Spontaneous
  Country: US (occurrence: US)
  Receive Date: 20230215
  Receipt Date: 20230215
  Transmission Date: 20230417
  Serious: No
  Sender: FDA-Public Use
  Company Number: US-ALLERGAN-2222173US

PATIENT
  Sex: Female

DRUGS (3)
  1. VIIBRYD [Suspect]
     Active Substance: VILAZODONE HYDROCHLORIDE
     Indication: Product used for unknown indication
     Dosage: ACTUAL: BROKE THE TABLET IN HALF AND TOOK HALF IN THE MORNING AND HALF IN THE EVENING
     Route: 048
  2. VIIBRYD [Suspect]
     Active Substance: VILAZODONE HYDROCHLORIDE
     Dosage: 10 MG, QD
     Route: 048
  3. UNSPECIFIED INGREDIENT [Concomitant]
     Active Substance: UNSPECIFIED INGREDIENT
     Indication: Pain
     Dosage: HIGH DOSES

REACTIONS (6)
  - Withdrawal syndrome [Unknown]
  - Feeling abnormal [Unknown]
  - Periorbital swelling [Unknown]
  - Eye swelling [Unknown]
  - Dizziness [Unknown]
  - Somnolence [Unknown]
